FAERS Safety Report 17827995 (Version 1)
Quarter: 2020Q2

REPORT INFORMATION
  Report Type: Spontaneous
  Country: GB (occurrence: GB)
  Receive Date: 20200527
  Receipt Date: 20200527
  Transmission Date: 20200714
  Serious: Yes (Hospitalization, Other)
  Sender: FDA-Public Use
  Company Number: NVSC2020GB139043

PATIENT
  Sex: Female

DRUGS (1)
  1. BISOPROLOL FUMARATE. [Suspect]
     Active Substance: BISOPROLOL FUMARATE
     Indication: PRODUCT USED FOR UNKNOWN INDICATION
     Dosage: UNK
     Route: 065

REACTIONS (11)
  - Cerebrovascular accident [Unknown]
  - Palpitations [Unknown]
  - Wrong technique in product usage process [Unknown]
  - Malaise [Unknown]
  - Tremor [Unknown]
  - Intentional product misuse [Unknown]
  - Dysarthria [Unknown]
  - Dyspnoea [Unknown]
  - Depressed level of consciousness [Unknown]
  - Sleep deficit [Unknown]
  - Adverse drug reaction [Unknown]
